FAERS Safety Report 23537119 (Version 2)
Quarter: 2024Q2

REPORT INFORMATION
  Report Type: Spontaneous
  Country: PL (occurrence: PL)
  Receive Date: 20240219
  Receipt Date: 20240404
  Transmission Date: 20240716
  Serious: Yes (Hospitalization)
  Sender: FDA-Public Use
  Company Number: PL-AMGEN-POLSP2024031534

PATIENT
  Sex: Female

DRUGS (1)
  1. NPLATE [Suspect]
     Active Substance: ROMIPLOSTIM
     Indication: Product used for unknown indication
     Dosage: 375 MICROGRAM
     Route: 065

REACTIONS (5)
  - Central nervous system haemorrhage [Unknown]
  - Platelet count increased [Recovered/Resolved]
  - Ischaemic stroke [Unknown]
  - Heavy menstrual bleeding [Unknown]
  - Dysmenorrhoea [Unknown]

NARRATIVE: CASE EVENT DATE: 20240122
